FAERS Safety Report 22654462 (Version 1)
Quarter: 2023Q2

REPORT INFORMATION
  Report Type: Spontaneous
  Country: US (occurrence: None)
  Receive Date: 20230628
  Receipt Date: 20230628
  Transmission Date: 20230722
  Serious: Yes (Hospitalization, Disabling)
  Sender: FDA-Public Use
  Company Number: None

PATIENT
  Age: 41 Year
  Sex: Female
  Weight: 81 kg

DRUGS (3)
  1. SEMAGLUTIDE [Suspect]
     Active Substance: SEMAGLUTIDE
     Indication: Weight decreased
     Dosage: OTHER QUANTITY : 0.1 INJECTION(S);?OTHER FREQUENCY : ONCE PER WEEK;?
     Route: 058
     Dates: start: 20230401, end: 20230425
  2. LEVOTHYROXINE [Concomitant]
     Active Substance: LEVOTHYROXINE
  3. MCOT [Concomitant]

REACTIONS (15)
  - Palpitations [None]
  - Gastrointestinal sounds abnormal [None]
  - Asthenia [None]
  - Increased appetite [None]
  - Abdominal pain upper [None]
  - Micturition urgency [None]
  - Cold sweat [None]
  - Feeling jittery [None]
  - Burning sensation [None]
  - Flushing [None]
  - Tremor [None]
  - Feeling cold [None]
  - Chills [None]
  - Presyncope [None]
  - Anal incontinence [None]

NARRATIVE: CASE EVENT DATE: 20230501
